FAERS Safety Report 7102819-5 (Version None)
Quarter: 2010Q4

REPORT INFORMATION
  Report Type: 
  Country: None (occurrence: None)
  Receive Date: 20101115
  Receipt Date: 20101108
  Transmission Date: 20110411
  Serious: Yes (Hospitalization)
  Sender: FDA-Public Use
  Company Number: PHHO2010CZ09463

PATIENT
  Sex: Male

DRUGS (4)
  1. NEORAL [Suspect]
     Indication: RENAL TRANSPLANT
     Dosage: 200 MG, QD
     Route: 048
     Dates: start: 20061105, end: 20100605
  2. NEORAL [Suspect]
     Dosage: UNK
     Dates: end: 20100829
  3. NEORAL [Suspect]
     Dosage: 200MG/DAY
     Route: 048
     Dates: start: 20100901
  4. MYFORTIC [Suspect]
     Indication: RENAL TRANSPLANT
     Route: 048

REACTIONS (4)
  - NEPHRECTOMY [None]
  - PYREXIA [None]
  - RENAL CYST [None]
  - URINARY TRACT INFECTION [None]
